FAERS Safety Report 6058309-4 (Version None)
Quarter: 2009Q1

REPORT INFORMATION
  Report Type: 
  Country: None (occurrence: None)
  Receive Date: 20090130
  Receipt Date: 20090116
  Transmission Date: 20090719
  Serious: Yes (Death, Hospitalization)
  Sender: FDA-Public Use
  Company Number: SE-AMGEN-US305448

PATIENT
  Sex: Female

DRUGS (16)
  1. ENBREL [Suspect]
     Indication: RHEUMATOID ARTHRITIS
     Dosage: UNKNOWN
     Route: 065
     Dates: start: 20030101, end: 20070101
  2. FOSAMAX [Concomitant]
     Dosage: 70 MG, DOSE FREQUENCY UNKNOWN
     Route: 065
  3. COZAAR [Concomitant]
     Route: 065
  4. METFORMIN [Concomitant]
     Route: 065
  5. TRAMADOL HCL [Concomitant]
     Route: 065
  6. PULMICORT-100 [Concomitant]
     Route: 065
  7. ZYLORIC [Concomitant]
     Dosage: 100 MG, DOSE FREQUENCY UNKNOWN
     Route: 065
  8. DUROFERON [Concomitant]
     Dosage: 100 MG, DOSE FREQUENCY UNKNOWN
     Route: 065
  9. EMCONCOR [Concomitant]
     Dosage: 10 MG, DOSE FREQUENCY UNKNOWN
     Route: 065
  10. BRICANYL [Concomitant]
  11. CITALOPRAM HYDROBROMIDE [Concomitant]
     Dosage: 20 MG, DOSE FREQUENCY UNKNOWN
     Route: 065
  12. VISCOTEARS [Concomitant]
  13. PREDNISOLONE [Concomitant]
  14. CALCICHEW-D3 [Concomitant]
  15. NOVOLOG MIX 70/30 [Concomitant]
  16. PANODIL - SLOW RELEASE [Concomitant]
     Dosage: 665 MG, DOSE FREQUENCY UNKNOWN
     Route: 065

REACTIONS (6)
  - INFECTION SUSCEPTIBILITY INCREASED [None]
  - LYMPHADENOPATHY [None]
  - PAROTID GLAND ENLARGEMENT [None]
  - PNEUMONIA [None]
  - PULMONARY EMBOLISM [None]
  - WOUND [None]
